FAERS Safety Report 15410454 (Version 1)
Quarter: 2018Q3

REPORT INFORMATION
  Report Type: Spontaneous
  Country: IN (occurrence: IN)
  Receive Date: 20180921
  Receipt Date: 20180921
  Transmission Date: 20181010
  Serious: No
  Sender: FDA-Public Use
  Company Number: IN-LUPIN PHARMACEUTICALS INC.-2017-07359

PATIENT
  Age: 22 Year
  Sex: Male

DRUGS (3)
  1. ESCITALENT PLUS [Concomitant]
     Indication: DEPRESSION
     Dosage: 1 DF, QD
     Route: 048
     Dates: start: 20171201
  2. DAYO?OD FIL.C.TAB ER 500 MG [Suspect]
     Active Substance: DIVALPROEX SODIUM
     Indication: DEPRESSION
  3. DAYO?OD FIL.C.TAB ER 500 MG [Suspect]
     Active Substance: DIVALPROEX SODIUM
     Indication: TENSION
     Dosage: 1 DF, QD
     Route: 048
     Dates: start: 20171201

REACTIONS (2)
  - Headache [Unknown]
  - Dizziness [Unknown]

NARRATIVE: CASE EVENT DATE: 20171213
